FAERS Safety Report 7631186-3 (Version None)
Quarter: 2011Q3

REPORT INFORMATION
  Report Type: 
  Country: None (occurrence: None)
  Receive Date: 20110715
  Receipt Date: 20110706
  Transmission Date: 20111222
  Serious: Yes (Hospitalization)
  Sender: FDA-Public Use
  Company Number: 2011HGS-002370

PATIENT
  Age: 56 Year
  Sex: Female
  Weight: 80 kg

DRUGS (21)
  1. TOPROL-XL [Concomitant]
  2. VALTREX (VALACICLOVIR HYDROCHLORIDE) (VALACICLOVIR HYDROCHLORIDE) [Concomitant]
  3. LASIX (LASIX /SCH/) (FUROSEMIDE, FUROSEMIDE SODIUM) [Concomitant]
  4. ARAVA (LEFLUNOMIDE) (LEFLUNOMIDE) [Concomitant]
  5. NEUROTIN (GABAPENTIN) (GABAPENTIN) [Concomitant]
  6. REGLAN (METOCLOPRAMIDE HYDROCHLORIDE) (METOCLOPRAMIDE HYDROCHLORIDE) [Concomitant]
  7. NIFEDIPINE ER (NIFEDIPINE) (NIFEDIPINE) [Concomitant]
  8. VICODIN (VICODIN) (PARACETAMOL, HYDROCODONE BITARTRATE) [Concomitant]
  9. PREDNISONE [Concomitant]
  10. LISINOPRIL [Concomitant]
  11. CYMBALTA (ANTIDEPRESSANTS) (DULOXETINE) [Concomitant]
  12. PRILOSEC (OMEPRAZOLE) (OMEPRAZOLE) [Concomitant]
  13. LEVOTHYROXINE (LEVOTHYROXINE) (LEVOTHYROXINE) [Concomitant]
  14. SAVELLA [Concomitant]
  15. CRESTOR [Concomitant]
  16. PLAQUENIL (HYDROXYCHLOROQUINE SULFATE) (HYDROCHLOROQUINE SULFATE) [Concomitant]
  17. BENLYSTA [Suspect]
     Indication: SYSTEMIC LUPUS ERYTHEMATOSUS
     Dosage: SEE IMAGE
     Route: 042
     Dates: start: 20110603
  18. BENLYSTA [Suspect]
     Indication: SYSTEMIC LUPUS ERYTHEMATOSUS
     Dosage: SEE IMAGE
     Route: 042
     Dates: start: 20110616
  19. BENTYL (DICYCLOVERINE HYDROCHLORIDE) (DICYCLOVERINE HYDROCHLORIDE) [Concomitant]
  20. PROVIGIL [Concomitant]
  21. CALTRATE D (LEKOVIT CA) (COLECALCIFEROL, CALCIUM CARBONATE) [Concomitant]

REACTIONS (12)
  - ABDOMINAL DISCOMFORT [None]
  - VIRAL INFECTION [None]
  - RETCHING [None]
  - VOMITING [None]
  - DIARRHOEA [None]
  - SYSTEMIC LUPUS ERYTHEMATOSUS [None]
  - NAUSEA [None]
  - DECREASED APPETITE [None]
  - DEHYDRATION [None]
  - FATIGUE [None]
  - FLUID INTAKE REDUCED [None]
  - CONDITION AGGRAVATED [None]
